FAERS Safety Report 8447975-1 (Version None)
Quarter: 2012Q2

REPORT INFORMATION
  Report Type: 
  Country: None (occurrence: None)
  Receive Date: 20120619
  Receipt Date: 20120606
  Transmission Date: 20120825
  Serious: No
  Sender: FDA-Public Use
  Company Number: US-B.I. PHARMACEUTICALS,INC./RIDGEFIELD-2012-BP-13191BP

PATIENT
  Sex: Female

DRUGS (3)
  1. COMBIVENT [Suspect]
     Indication: ASTHMA
     Dosage: 8 PUF
  2. COMBIVENT [Suspect]
     Indication: CHRONIC OBSTRUCTIVE PULMONARY DISEASE
  3. COMBIVENT [Suspect]
     Indication: EMPHYSEMA

REACTIONS (2)
  - COUGH [None]
  - ASTHMA [None]
